FAERS Safety Report 5001814-X (Version None)
Quarter: 2006Q2

REPORT INFORMATION
  Report Type: 
  Country: None (occurrence: None)
  Receive Date: 20060515
  Receipt Date: 20060510
  Transmission Date: 20061013
  Serious: Yes (Hospitalization)
  Sender: FDA-Public Use
  Company Number: US-GLAXOSMITHKLINE-A0605064A

PATIENT

DRUGS (1)
  1. COREG [Suspect]
     Route: 048

REACTIONS (2)
  - BRONCHOSPASM [None]
  - EJECTION FRACTION DECREASED [None]
